FAERS Safety Report 17044139 (Version 2)
Quarter: 2020Q1

REPORT INFORMATION
  Report Type: Spontaneous
  Country: US (occurrence: US)
  Receive Date: 20191118
  Receipt Date: 20200121
  Transmission Date: 20200409
  Serious: Yes (Hospitalization, Other)
  Sender: FDA-Public Use
  Company Number: US-JNJFOC-20191109504

PATIENT
  Age: 73 Year
  Sex: Male
  Weight: 71.73 kg

DRUGS (1)
  1. ABIRATERONE ACETATE. [Suspect]
     Active Substance: ABIRATERONE ACETATE
     Indication: PROSTATE CANCER
     Route: 048
     Dates: end: 20190710

REACTIONS (10)
  - Intervertebral disc operation [Recovering/Resolving]
  - Spinal laminectomy [Recovering/Resolving]
  - Postoperative wound complication [Recovering/Resolving]
  - Malaise [Unknown]
  - Arthralgia [Recovering/Resolving]
  - Surgery [Unknown]
  - Back pain [Recovering/Resolving]
  - Skin discolouration [Unknown]
  - Pain in extremity [Recovering/Resolving]
  - Post procedural complication [Unknown]

NARRATIVE: CASE EVENT DATE: 2019
